FAERS Safety Report 19371476 (Version 2)
Quarter: 2021Q2

REPORT INFORMATION
  Report Type: Spontaneous
  Country: US (occurrence: US)
  Receive Date: 20210603
  Receipt Date: 20210615
  Transmission Date: 20210717
  Serious: Yes (Hospitalization)
  Sender: FDA-Public Use
  Company Number: US-TEVA-2021-US-1917480

PATIENT
  Age: 6 Year
  Sex: Male

DRUGS (7)
  1. ETOPOSIDE. [Suspect]
     Active Substance: ETOPOSIDE
     Dosage: 3 CYCLES
     Route: 065
  2. IFOSFAMIDE. [Suspect]
     Active Substance: IFOSFAMIDE
     Indication: RENAL CANCER METASTATIC
     Dosage: 4 CYCLES
     Route: 065
  3. IFOSFAMIDE. [Suspect]
     Active Substance: IFOSFAMIDE
     Dosage: 3 CYCLES
     Route: 065
  4. MANNITOL. [Concomitant]
     Active Substance: MANNITOL
     Indication: NEPHROPROTECTIVE THERAPY
     Dosage: BEFORE AND AFTER CHEMOTHERAPY
     Route: 065
  5. ETOPOSIDE. [Suspect]
     Active Substance: ETOPOSIDE
     Indication: RENAL CANCER METASTATIC
     Dosage: 4 CYCLES
     Route: 065
  6. VINCRISTINE [Suspect]
     Active Substance: VINCRISTINE
     Indication: RENAL CANCER METASTATIC
     Dosage: 3 CYCLES
  7. CISPLATIN. [Suspect]
     Active Substance: CISPLATIN
     Indication: RENAL CANCER METASTATIC
     Dosage: 4 CYCLES
     Route: 065

REACTIONS (3)
  - Febrile neutropenia [Unknown]
  - Chronic kidney disease [Unknown]
  - Acute kidney injury [Unknown]
